FAERS Safety Report 6762358-8 (Version None)
Quarter: 2010Q2

REPORT INFORMATION
  Report Type: 
  Country: None (occurrence: None)
  Receive Date: 20100609
  Receipt Date: 20100601
  Transmission Date: 20101027
  Serious: Yes (Other)
  Sender: FDA-Public Use
  Company Number: US-ROCHE-680235

PATIENT
  Sex: Female

DRUGS (4)
  1. PEGASYS [Suspect]
     Indication: HEPATITIS C
     Dosage: FORM: PRE-FILLED SYRINGE
     Route: 065
     Dates: start: 20090625, end: 20091202
  2. RIBASPHERE [Suspect]
     Indication: HEPATITIS C
     Dosage: DIVIDED DOSES
     Route: 065
     Dates: start: 20090625, end: 20091202
  3. LEXAPRO [Concomitant]
  4. VALIUM [Concomitant]

REACTIONS (9)
  - AMNESIA [None]
  - ANXIETY [None]
  - DEMENTIA ALZHEIMER'S TYPE [None]
  - HERPES ZOSTER [None]
  - MENOPAUSAL SYMPTOMS [None]
  - PAIN [None]
  - RASH PUSTULAR [None]
  - SUICIDAL IDEATION [None]
  - TREMOR [None]
